FAERS Safety Report 8920105 (Version 1)
Quarter: 2012Q4

REPORT INFORMATION
  Report Type: 
  Country: US (occurrence: US)
  Receive Date: 20121121
  Receipt Date: 20121121
  Transmission Date: 20130627
  Serious: Yes (Hospitalization)
  Sender: FDA-Public Use
  Company Number: US-AMGEN-USASP2012074311

PATIENT
  Sex: Female

DRUGS (1)
  1. ENBREL [Suspect]
     Indication: RHEUMATOID ARTHRITIS
     Dosage: 50 mg, qwk
     Dates: start: 20091111, end: 201210

REACTIONS (3)
  - Urinary tract infection [Recovered/Resolved]
  - Nephrectomy [Recovered/Resolved]
  - Nephrolithiasis [Recovered/Resolved]
